FAERS Safety Report 8886972 (Version 1)
Quarter: 2012Q4

REPORT INFORMATION
  Report Type: Report from Study
  Country: DE (occurrence: DE)
  Receive Date: 20121105
  Receipt Date: 20121105
  Transmission Date: 20130627
  Serious: Yes (Death, Life-Threatening, Hospitalization)
  Sender: FDA-Public Use
  Company Number: DE-BRISTOL-MYERS SQUIBB COMPANY-17076027

PATIENT
  Age: 61 Year
  Sex: Female
  Weight: 92 kg

DRUGS (5)
  1. PACLITAXEL [Suspect]
     Indication: BREAST CANCER METASTATIC
     Dosage: Taken on 11 +18Oct11
Recent dose: 25-Oct11
stopped
     Route: 042
  2. BEVACIZUMAB [Suspect]
     Indication: BREAST CANCER METASTATIC
     Dosage: Recent dose: 25-Oct11
stopped
     Route: 042
  3. METOCLOPRAMIDE HCL [Suspect]
     Indication: NAUSEA
     Dosage: Daily
stopped
     Route: 048
  4. RANITIDINE [Suspect]
     Indication: NAUSEA
     Dosage: stopped
     Route: 048
  5. CITALOPRAM [Suspect]
     Indication: DEPRESSION
     Dosage: Daily
     Route: 048

REACTIONS (3)
  - Intestinal ischaemia [Fatal]
  - Gastrointestinal necrosis [Unknown]
  - Abdominal pain [Unknown]
